FAERS Safety Report 22619932 (Version 1)
Quarter: 2023Q2

REPORT INFORMATION
  Report Type: Spontaneous
  Country: CN (occurrence: CN)
  Receive Date: 20230620
  Receipt Date: 20230620
  Transmission Date: 20230722
  Serious: Yes (Other)
  Sender: FDA-Public Use
  Company Number: CN-MEITHEAL-2023MPLIT00077

PATIENT
  Age: 63 Year
  Sex: Female

DRUGS (10)
  1. GEMCITABINE [Suspect]
     Active Substance: GEMCITABINE
     Indication: Ovarian cancer stage III
     Dosage: CYCLE 1
     Route: 065
     Dates: start: 201803, end: 201804
  2. GEMCITABINE [Suspect]
     Active Substance: GEMCITABINE
     Dosage: 1.2 G DISSOLVED IN 0.9% SODIUM CHLORIDE INJECTION 100 ML, 21 DAYS FOR CYCLE 1
     Route: 041
     Dates: start: 20180424, end: 201805
  3. GEMCITABINE [Suspect]
     Active Substance: GEMCITABINE
     Dosage: CYCLE 2
     Route: 065
     Dates: start: 20180522, end: 201805
  4. GEMCITABINE [Suspect]
     Active Substance: GEMCITABINE
     Dosage: CYCLE 3
     Route: 065
     Dates: start: 201806, end: 201806
  5. CARBOPLATIN [Concomitant]
     Active Substance: CARBOPLATIN
     Indication: Ovarian cancer stage III
     Route: 065
     Dates: start: 201803, end: 201804
  6. CARBOPLATIN [Concomitant]
     Active Substance: CARBOPLATIN
     Dosage: DISSOLVED IN 5% GLUCOSE INJECTION 500 ML, 21 DAYS FOR 1 CYCLE
     Route: 041
     Dates: start: 20180424, end: 201805
  7. CARBOPLATIN [Concomitant]
     Active Substance: CARBOPLATIN
     Dosage: CYCLE 2
     Route: 065
     Dates: start: 20180522, end: 201806
  8. CARBOPLATIN [Concomitant]
     Active Substance: CARBOPLATIN
     Dosage: CYCLE 3
     Route: 065
     Dates: start: 201806, end: 201806
  9. DOCETAXEL [Concomitant]
     Active Substance: DOCETAXEL
     Indication: Ovarian cancer stage III
     Dosage: CYCLE 1
     Dates: start: 201803, end: 2018
  10. NEDAPLATIN [Concomitant]
     Active Substance: NEDAPLATIN
     Indication: Ovarian cancer stage III
     Route: 065
     Dates: start: 201803, end: 2018

REACTIONS (1)
  - Scleroderma-like reaction [Unknown]
